FAERS Safety Report 9728373 (Version 1)
Quarter: 2013Q4

REPORT INFORMATION
  Report Type: Spontaneous
  Country: JP (occurrence: JP)
  Receive Date: 20131204
  Receipt Date: 20131204
  Transmission Date: 20140711
  Serious: Yes (Other)
  Sender: FDA-Public Use
  Company Number: JP-ASTRAZENECA-2013SE87832

PATIENT
  Age: 67 Year
  Sex: Male

DRUGS (2)
  1. CASODEX [Suspect]
     Indication: PROSTATE CANCER
     Route: 048
     Dates: start: 2012
  2. VILDAGLIPTIN [Concomitant]
     Indication: DIABETES MELLITUS
     Route: 065
     Dates: start: 2012

REACTIONS (1)
  - Diabetic ketoacidosis [Recovered/Resolved]
